FAERS Safety Report 18552256 (Version 8)
Quarter: 2024Q2

REPORT INFORMATION
  Report Type: Spontaneous
  Country: US (occurrence: US)
  Receive Date: 20201127
  Receipt Date: 20240423
  Transmission Date: 20240716
  Serious: Yes (Hospitalization, Other)
  Sender: FDA-Public Use
  Company Number: US-TEVA-2020-US-1852938

PATIENT
  Age: 64 Year
  Sex: Male

DRUGS (18)
  1. HYDROCHLOROTHIAZIDE\VALSARTAN [Suspect]
     Active Substance: HYDROCHLOROTHIAZIDE\VALSARTAN
     Indication: Hypertension
     Dosage: DOSAGE TEXT: VALSARTAN 160 MG/HYDROCHLOROTHIAZIDE 12.5 MG
     Route: 065
     Dates: start: 20140104, end: 20160816
  2. HYDROCHLOROTHIAZIDE\VALSARTAN [Suspect]
     Active Substance: HYDROCHLOROTHIAZIDE\VALSARTAN
     Indication: Hypertension
     Dosage: DOSAGE TEXT: VALSARTAN 160 MG/HYDROCHLOROTHIAZIDE 12.5 MG
     Route: 065
     Dates: start: 20171215, end: 20180315
  3. HYDROCHLOROTHIAZIDE\VALSARTAN [Suspect]
     Active Substance: HYDROCHLOROTHIAZIDE\VALSARTAN
     Indication: Hypertension
     Dosage: DOSAGE TEXT: VALSARTAN 160 MG/HYDROCHLOROTHIAZIDE 12.5 MG
     Route: 065
     Dates: start: 20180521, end: 20180819
  4. HYDROCHLOROTHIAZIDE\VALSARTAN [Suspect]
     Active Substance: HYDROCHLOROTHIAZIDE\VALSARTAN
     Indication: Hypertension
     Dosage: DOSAGE TEXT: VALSARTAN 160 MG/HYDROCHLOROTHIAZIDE 12.5 MG
     Route: 065
     Dates: start: 20161003, end: 20170404
  5. HYDROCHLOROTHIAZIDE\VALSARTAN [Suspect]
     Active Substance: HYDROCHLOROTHIAZIDE\VALSARTAN
     Indication: Hypertension
     Dosage: DOSAGE TEXT: VALSARTAN 160 MG/HYDROCHLOROTHIAZIDE 12.5 MG
     Route: 065
     Dates: start: 20170620, end: 20170915
  6. METFORMIN [Concomitant]
     Active Substance: METFORMIN HYDROCHLORIDE
     Indication: Diabetes mellitus
     Dosage: DOSAGE TEXT: 1000 MG
     Dates: start: 199706, end: 2019
  7. ADVIL [Concomitant]
     Active Substance: IBUPROFEN
     Indication: Arthralgia
     Dates: start: 2017, end: 2019
  8. CRESTOR [Concomitant]
     Active Substance: ROSUVASTATIN CALCIUM
     Route: 048
  9. GLUCOPHAGE [Concomitant]
     Active Substance: METFORMIN HYDROCHLORIDE
     Route: 048
  10. GLIMEPIRIDE [Concomitant]
     Active Substance: GLIMEPIRIDE
     Dosage: DOSAGE TEXT: 1 MG WITH BREAKFAST
     Route: 048
  11. PIOGLITAZONE [Concomitant]
     Active Substance: PIOGLITAZONE
     Dosage: DOSAGE TEXT: ACTOS
     Route: 048
  12. TRAMADOL [Concomitant]
     Active Substance: TRAMADOL\TRAMADOL HYDROCHLORIDE
     Dosage: DOSAGE TEXT: EVERY 6 HOURS AS NEEDED
     Route: 048
  13. HYDROCHLOROTHIAZIDE\VALSARTAN [Suspect]
     Active Substance: HYDROCHLOROTHIAZIDE\VALSARTAN
     Indication: Hypertension
     Dosage: DOSAGE TEXT: VALSARTAN 160MG/HYDROCHLOROTHIAZIDE 12.5 MG
     Route: 065
     Dates: start: 20080618, end: 20080717
  14. HYDROCHLOROTHIAZIDE\VALSARTAN [Suspect]
     Active Substance: HYDROCHLOROTHIAZIDE\VALSARTAN
     Indication: Hypertension
     Dosage: DOSAGE TEXT: VALSARTAN 160MG/HYDROCHLOROTHIAZIDE 12.5 MG
     Route: 065
     Dates: start: 20081011, end: 20081223
  15. HYDROCHLOROTHIAZIDE\VALSARTAN [Suspect]
     Active Substance: HYDROCHLOROTHIAZIDE\VALSARTAN
     Indication: Hypertension
     Dosage: DOSAGE TEXT: VALSARTAN 160 MG/HYDROCHLOROTHIAZIDE 12.5 MG
     Route: 065
     Dates: start: 20181102, end: 20190130
  16. HYDROCHLOROTHIAZIDE\VALSARTAN [Suspect]
     Active Substance: HYDROCHLOROTHIAZIDE\VALSARTAN
     Indication: Hypertension
     Dosage: DOSAGE TEXT: LOSARTAN 100MG/HYDROCHLOROTHIAZIDE 12.5 MG
     Route: 065
     Dates: start: 20190220, end: 20190521
  17. LOSARTAN [Suspect]
     Active Substance: LOSARTAN
     Indication: Hypertension
     Route: 065
     Dates: start: 20190614, end: 20190714
  18. LOSARTAN [Suspect]
     Active Substance: LOSARTAN
     Indication: Hypertension
     Route: 065
     Dates: start: 20190723, end: 20200206

REACTIONS (2)
  - Rectal cancer metastatic [Not Recovered/Not Resolved]
  - Metastases to liver [Not Recovered/Not Resolved]
